FAERS Safety Report 20548932 (Version 1)
Quarter: 2022Q1

REPORT INFORMATION
  Report Type: Spontaneous
  Country: ID (occurrence: ID)
  Receive Date: 20220303
  Receipt Date: 20220303
  Transmission Date: 20220423
  Serious: Yes (Hospitalization, Other)
  Sender: FDA-Public Use
  Company Number: ID-BoehringerIngelheim-2022-BI-156054

PATIENT
  Sex: Female

DRUGS (1)
  1. GILOTRIF [Suspect]
     Active Substance: AFATINIB
     Indication: Chemotherapy side effect prophylaxis
     Route: 065

REACTIONS (2)
  - Surgery [Unknown]
  - Off label use [Unknown]
